FAERS Safety Report 7576104-1 (Version None)
Quarter: 2011Q2

REPORT INFORMATION
  Report Type: 
  Country: None (occurrence: None)
  Receive Date: 20110623
  Receipt Date: 20110623
  Transmission Date: 20111010
  Serious: Yes (Life-Threatening, Other)
  Sender: FDA-Public Use
  Company Number: None

PATIENT
  Age: 55 Year
  Sex: Female
  Weight: 58.9676 kg

DRUGS (2)
  1. HUMIRA [Suspect]
     Indication: SJOGREN'S SYNDROME
     Dosage: 40MG HUMIRA WILL 2 WEEK STARTING IN AUG 2010-APRIL WILL WEEK
     Dates: start: 20110401
  2. HUMIRA [Suspect]
     Indication: SJOGREN'S SYNDROME
     Dosage: 40MG HUMIRA WILL 2 WEEK STARTING IN AUG 2010-APRIL WILL WEEK
     Dates: start: 20100801

REACTIONS (1)
  - DYSPHAGIA [None]
